FAERS Safety Report 5757249-5 (Version None)
Quarter: 2008Q2

REPORT INFORMATION
  Report Type: 
  Country: None (occurrence: None)
  Receive Date: 20080507
  Receipt Date: 20070320
  Transmission Date: 20081010
  Serious: Yes (Hospitalization)
  Sender: FDA-Public Use
  Company Number: 230643K07USA

PATIENT
  Age: 37 Year
  Sex: Female

DRUGS (5)
  1. REBIF [Suspect]
     Indication: MULTIPLE SCLEROSIS
     Dosage: 44 MCG, 3 IN 1 WEEKS, SUBCUTANEOUS
     Route: 058
     Dates: start: 20060714, end: 20070314
  2. CYMBALTA [Concomitant]
  3. OXYBUTYN (OXYBUTYNIN HYDROCHLORIDE) [Concomitant]
  4. NEURONTIN [Concomitant]
  5. KEPPRA [Concomitant]

REACTIONS (9)
  - ABDOMINAL DISTENSION [None]
  - ALOPECIA [None]
  - ASTHENIA [None]
  - EYE PAIN [None]
  - MULTIPLE SCLEROSIS RELAPSE [None]
  - MUSCLE SPASMS [None]
  - OCULAR ICTERUS [None]
  - OPTIC NEURITIS [None]
  - YELLOW SKIN [None]
